FAERS Safety Report 7733555-X (Version None)
Quarter: 2011Q3

REPORT INFORMATION
  Report Type: 
  Country: None (occurrence: None)
  Receive Date: 20110907
  Receipt Date: 20110824
  Transmission Date: 20111222
  Serious: Yes (Other)
  Sender: FDA-Public Use
  Company Number: US-ELI_LILLY_AND_COMPANY-US201108008378

PATIENT
  Age: 39 Year
  Sex: Female

DRUGS (3)
  1. CYMBALTA [Suspect]
     Indication: DEPRESSION
     Dosage: 60 MG, QD
  2. PROPRANOLOL [Concomitant]
  3. TOPAMAX [Concomitant]

REACTIONS (9)
  - DRUG WITHDRAWAL SYNDROME [None]
  - TREMOR [None]
  - FEELING ABNORMAL [None]
  - DISCOMFORT [None]
  - INFLUENZA LIKE ILLNESS [None]
  - TINNITUS [None]
  - HEADACHE [None]
  - SUICIDAL IDEATION [None]
  - NECK INJURY [None]
